FAERS Safety Report 5175571-0 (Version None)
Quarter: 2006Q4

REPORT INFORMATION
  Report Type: 
  Country: None (occurrence: None)
  Receive Date: 20061212
  Receipt Date: 20061212
  Transmission Date: 20070319
  Serious: Yes (Hospitalization)
  Sender: FDA-Public Use
  Company Number: None

PATIENT
  Age: 81 Year
  Sex: Female
  Weight: 64.8 kg

DRUGS (7)
  1. FLEET  PHOSPO-SODA [Suspect]
     Indication: COLONOSCOPY
     Dosage: ONCE PO
     Route: 048
  2. ATENOLOL [Concomitant]
  3. PRILOSEC [Concomitant]
  4. HYDROXYCHLOROQUINE SULFATE [Concomitant]
  5. HYDROCHLOROTHIAZIDE [Concomitant]
  6. TRILISATE [Concomitant]
  7. CALCIUM [Concomitant]

REACTIONS (3)
  - HYPERTENSION [None]
  - NEPHROPATHY [None]
  - RENAL FAILURE CHRONIC [None]
